FAERS Safety Report 18158008 (Version 1)
Quarter: 2020Q3

REPORT INFORMATION
  Report Type: Spontaneous
  Country: US (occurrence: US)
  Receive Date: 20200817
  Receipt Date: 20200817
  Transmission Date: 20201103
  Serious: No
  Sender: FDA-Public Use
  Company Number: US-MEDEXUS PHARMA, INC.-2020MED00147

PATIENT
  Age: 43 Year
  Sex: Female
  Weight: 81.63 kg

DRUGS (12)
  1. RASUVO [Suspect]
     Active Substance: METHOTREXATE SODIUM
     Indication: RHEUMATOID ARTHRITIS
  2. AZO CREAM [Concomitant]
     Dosage: UNK, AS NEEDED
  3. FLEXERIL [Concomitant]
     Active Substance: CYCLOBENZAPRINE HYDROCHLORIDE
     Dosage: UNK, 1X/DAY AT NIGHT
  4. RASUVO [Suspect]
     Active Substance: METHOTREXATE SODIUM
     Indication: ARTHRITIS
     Dosage: 15 MG, 1X/WEEK AT 8PM ON FRIDAY INJECTED ^2 INCHES FROM THE BELLY BUTTON, DIAGNALLY AND DOWN^
     Dates: start: 20200515
  5. XANAX [Concomitant]
     Active Substance: ALPRAZOLAM
     Dosage: UNK, AS NEEDED IF NOT VALIUM
  6. SERTRALINE [Concomitant]
     Active Substance: SERTRALINE HYDROCHLORIDE
     Dosage: 200 MG, 1X/DAY IN THE MORNING
  7. UNSPECIFIED STIMULANT FOR THE BATHROOM [Concomitant]
  8. VALIUM [Concomitant]
     Active Substance: DIAZEPAM
     Dosage: UNK, AS NEEDED
     Dates: start: 202005
  9. DULOXETINE. [Concomitant]
     Active Substance: DULOXETINE
  10. UNSPECIFIED VITAMINS [Concomitant]
     Active Substance: VITAMINS
  11. ESTROGEN TABLET [Concomitant]
     Dosage: 0.5 TABLETS
  12. AZATHIOPRINE. [Suspect]
     Active Substance: AZATHIOPRINE

REACTIONS (7)
  - Unevaluable event [Unknown]
  - Device failure [Recovered/Resolved]
  - Dizziness [Unknown]
  - Accidental exposure to product [Recovered/Resolved]
  - Fatigue [Recovering/Resolving]
  - Hypersomnia [Recovering/Resolving]
  - Off label use [Not Recovered/Not Resolved]

NARRATIVE: CASE EVENT DATE: 2020
